FAERS Safety Report 7214852-3 (Version None)
Quarter: 2011Q1

REPORT INFORMATION
  Report Type: 
  Country: None (occurrence: None)
  Receive Date: 20110107
  Receipt Date: 20100406
  Transmission Date: 20110831
  Serious: No
  Sender: FDA-Public Use
  Company Number: A0853725A

PATIENT
  Age: 51 Year
  Sex: Female

DRUGS (4)
  1. LOVAZA [Suspect]
     Dosage: 2CAP TWICE PER DAY
     Route: 048
     Dates: start: 20091002
  2. CENTRUM [Concomitant]
  3. GLUCOSAMINE + CHONDROITIN [Concomitant]
  4. GARLIC [Concomitant]

REACTIONS (1)
  - GASTROINTESTINAL TRACT IRRITATION [None]
